FAERS Safety Report 8765388 (Version 4)
Quarter: 2014Q1

REPORT INFORMATION
  Report Type: Report from Study
  Country: JP (occurrence: JP)
  Receive Date: 20120831
  Receipt Date: 20140117
  Transmission Date: 20141002
  Serious: Yes (Other)
  Sender: FDA-Public Use
  Company Number: JP-VERTEX PHARMACEUTICAL INC.-AE-2012-008316

PATIENT
  Age: 49 Year
  Sex: Male

DRUGS (24)
  1. VX-950 (TELAPREVIR) [Suspect]
     Indication: CHRONIC HEPATITIS C
     Dosage: 2250 MG, QD
     Route: 048
     Dates: start: 20120216, end: 20120322
  2. VX-950 (TELAPREVIR) [Suspect]
     Dosage: 1500 MG, QD
     Route: 048
     Dates: start: 20120323, end: 20120330
  3. VX-950 (TELAPREVIR) [Suspect]
     Dosage: 1500 MG, QD
     Route: 048
     Dates: start: 20120406, end: 20120510
  4. REBETOL [Suspect]
     Indication: CHRONIC HEPATITIS C
     Dosage: 800 MG, QD
     Route: 048
     Dates: start: 20120216, end: 20120315
  5. REBETOL [Suspect]
     Dosage: 400 MG, QD
     Route: 048
     Dates: start: 20120316, end: 20120322
  6. REBETOL [Suspect]
     Dosage: 200 MG, QD
     Route: 048
     Dates: start: 20120323, end: 20120330
  7. REBETOL [Suspect]
     Dosage: 200 MG, QD
     Route: 048
     Dates: start: 20120406, end: 20120511
  8. REBETOL [Suspect]
     Dosage: 400 MG, QD
     Route: 048
     Dates: start: 20120512, end: 20120809
  9. REBETOL [Suspect]
     Dosage: 500 MG, QD
     Route: 048
     Dates: start: 20120810
  10. PEGINTRON [Suspect]
     Indication: CHRONIC HEPATITIS C
     Dosage: 1.5 ?G/KG, QW
     Route: 058
     Dates: start: 20120216, end: 20120301
  11. PEGINTRON [Suspect]
     Dosage: 1.1 ?G/KG, QW
     Route: 058
     Dates: start: 20120302, end: 20120315
  12. PEGINTRON [Suspect]
     Dosage: 1.0 ?G/KG, QW
     Route: 058
     Dates: start: 20120316, end: 20120329
  13. PEGINTRON [Suspect]
     Dosage: 0.5 ?G/KG, QW
     Route: 058
     Dates: start: 20120330, end: 20120406
  14. PEGINTRON [Suspect]
     Dosage: 0.6 ?G/KG, QW
     Route: 058
     Dates: start: 20120413, end: 20120413
  15. PEGINTRON [Suspect]
     Dosage: 0.75 ?G/KG, QW
     Route: 058
     Dates: start: 20120420, end: 20120504
  16. PEGINTRON [Suspect]
     Dosage: 0.45 ?G/KG, QW
     Route: 058
     Dates: start: 20120511, end: 20120511
  17. PEGINTRON [Suspect]
     Dosage: 0.9 ?G/KG, QW
     Route: 058
     Dates: start: 20120518, end: 20120518
  18. PEGINTRON [Suspect]
     Dosage: 0.75 ?G/KG, QW
     Route: 058
     Dates: start: 20120525, end: 20120525
  19. PEGINTRON [Suspect]
     Dosage: 0.82 ?G/KG, QW
     Route: 058
     Dates: start: 20120601, end: 20120622
  20. PEGINTRON [Suspect]
     Dosage: 0.9 ?G/KG, QW
     Route: 058
     Dates: start: 20120629, end: 20120706
  21. PEGINTRON [Suspect]
     Dosage: 1.05 ?G/KG, QW
     Route: 058
     Dates: start: 20120713
  22. REVOLADE [Concomitant]
     Dosage: 12.5 MG, QD
     Route: 048
     Dates: end: 20120510
  23. REVOLADE [Concomitant]
     Dosage: 25 MG, QD
     Route: 048
     Dates: start: 20120511
  24. CONFATANIN [Concomitant]
     Dosage: UNK, PRN
     Route: 048
     Dates: start: 20120216, end: 20120519

REACTIONS (5)
  - Gout [Recovered/Resolved]
  - Gout [Recovered/Resolved]
  - Haemoglobin decreased [Not Recovered/Not Resolved]
  - Platelet count decreased [Not Recovered/Not Resolved]
  - Hyperuricaemia [Recovered/Resolved]
